FAERS Safety Report 4815567-9 (Version None)
Quarter: 2005Q4

REPORT INFORMATION
  Report Type: 
  Country: None (occurrence: None)
  Receive Date: 20051028
  Receipt Date: 20051028
  Transmission Date: 20060501
  Serious: Yes (Hospitalization, Other)
  Sender: FDA-Public Use
  Company Number: None

PATIENT
  Sex: Female
  Weight: 16 kg

DRUGS (3)
  1. CYCLOPHOSPHAM [Suspect]
     Indication: B PRECURSOR TYPE ACUTE LEUKAEMIA
     Dosage: SEE IMAGE
     Dates: start: 20050923
  2. CYCLOPHOSPHAM [Suspect]
     Indication: B PRECURSOR TYPE ACUTE LEUKAEMIA
     Dosage: SEE IMAGE
     Dates: start: 20051021
  3. CYTARABINE [Suspect]
     Dosage: SEE IMAGE
     Dates: start: 20051021

REACTIONS (7)
  - CYANOSIS [None]
  - HYPOVENTILATION [None]
  - LETHARGY [None]
  - MALAISE [None]
  - PALLOR [None]
  - PULSE PRESSURE DECREASED [None]
  - VOMITING [None]
